FAERS Safety Report 9141108 (Version 1)
Quarter: 2013Q1

REPORT INFORMATION
  Report Type: Report from Study
  Country: ZA (occurrence: ZA)
  Receive Date: 20130305
  Receipt Date: 20130305
  Transmission Date: 20140127
  Serious: Yes (Death)
  Sender: FDA-Public Use
  Company Number: ZA-ROCHE-1195964

PATIENT
  Sex: Male
  Weight: 57 kg

DRUGS (7)
  1. MIRCERA [Suspect]
     Indication: NEPHROGENIC ANAEMIA
     Route: 065
  2. MIRCERA [Suspect]
     Route: 065
  3. MIRCERA [Suspect]
     Route: 065
  4. MIRCERA [Suspect]
     Route: 065
  5. MIRCERA [Suspect]
     Route: 065
  6. MIRCERA [Suspect]
     Route: 065
  7. RECORMON [Suspect]
     Indication: NEPHROGENIC ANAEMIA
     Route: 065

REACTIONS (1)
  - Death [Fatal]
